FAERS Safety Report 15932955 (Version 3)
Quarter: 2019Q2

REPORT INFORMATION
  Report Type: Spontaneous
  Country: US (occurrence: US)
  Receive Date: 20190207
  Receipt Date: 20190410
  Transmission Date: 20190711
  Serious: Yes (Other)
  Sender: FDA-Public Use
  Company Number: US-ASTRAZENECA-2018SF21529

PATIENT
  Sex: Female
  Weight: 83 kg

DRUGS (14)
  1. PRILOSEC [Suspect]
     Active Substance: OMEPRAZOLE MAGNESIUM
     Dosage: GENERIC OMEPRAZOLE
     Route: 065
  2. NIACIN. [Concomitant]
     Active Substance: NIACIN
     Route: 048
  3. NEXIUM [Suspect]
     Active Substance: ESOMEPRAZOLE MAGNESIUM
     Route: 048
     Dates: start: 2001, end: 2009
  4. PRILOSEC [Suspect]
     Active Substance: OMEPRAZOLE MAGNESIUM
     Route: 048
     Dates: start: 2001, end: 2009
  5. HYDRALAZINE [Concomitant]
     Active Substance: HYDRALAZINE HYDROCHLORIDE
     Route: 048
  6. RANITIDINE. [Concomitant]
     Active Substance: RANITIDINE
     Route: 048
  7. PRILOSEC OTC [Suspect]
     Active Substance: OMEPRAZOLE MAGNESIUM
     Route: 048
     Dates: start: 2001, end: 2009
  8. GABAPENTIN. [Concomitant]
     Active Substance: GABAPENTIN
     Route: 048
  9. METOPROLOL TARTRATE. [Concomitant]
     Active Substance: METOPROLOL TARTRATE
     Route: 048
  10. NEXIUM 24HR [Suspect]
     Active Substance: ESOMEPRAZOLE MAGNESIUM
     Route: 048
  11. PREVACID [Suspect]
     Active Substance: LANSOPRAZOLE
     Route: 065
     Dates: start: 2001, end: 2009
  12. AMLODIPINE [Concomitant]
     Active Substance: AMLODIPINE BESYLATE
     Route: 048
  13. ALLOPURINOL. [Concomitant]
     Active Substance: ALLOPURINOL
     Route: 048
  14. PREVACID 24 HR [Suspect]
     Active Substance: LANSOPRAZOLE
     Route: 065
     Dates: start: 2001, end: 2009

REACTIONS (6)
  - Gastrooesophageal reflux disease [Unknown]
  - Nephrogenic anaemia [Unknown]
  - Chronic kidney disease [Unknown]
  - Renal failure [Unknown]
  - Acute kidney injury [Unknown]
  - Gout [Not Recovered/Not Resolved]
